FAERS Safety Report 24772382 (Version 2)
Quarter: 2024Q4

REPORT INFORMATION
  Report Type: Spontaneous
  Country: JP (occurrence: JP)
  Receive Date: 20241224
  Receipt Date: 20241230
  Transmission Date: 20250114
  Serious: Yes (Disabling, Other)
  Sender: PFIZER
  Company Number: JP-MLMSERVICE-20241211-PI295286-00218-1

PATIENT
  Age: 66 Year
  Sex: Female

DRUGS (1)
  1. METHOTREXATE SODIUM [Suspect]
     Active Substance: METHOTREXATE SODIUM
     Indication: Rheumatoid arthritis
     Dosage: RECEIVED FOR 8 YEARS

REACTIONS (5)
  - Lymphoproliferative disorder [Recovered/Resolved]
  - Ocular lymphoma [Recovered/Resolved]
  - Visual acuity reduced [Recovered/Resolved]
  - Central nervous system leukaemia [Recovered/Resolved]
  - Diffuse large B-cell lymphoma [Recovered/Resolved]
